FAERS Safety Report 9507917 (Version 1)
Quarter: 2013Q4

REPORT INFORMATION
  Report Type: Spontaneous
  Country: US (occurrence: None)
  Receive Date: 20130906
  Receipt Date: 20130906
  Transmission Date: 20140711
  Serious: Yes (Hospitalization)
  Sender: FDA-Public Use
  Company Number: None

PATIENT
  Age: 73 Year
  Sex: Female
  Weight: 106.6 kg

DRUGS (3)
  1. GEMCITABINE [Suspect]
     Dosage: IV EVERY 2 WEEKS FOR 3 CYCLES
     Route: 042
     Dates: start: 20130606, end: 20130711
  2. NEULASTA [Suspect]
     Dosage: 3 CYCLES
  3. CISPLATIN [Suspect]

REACTIONS (3)
  - Atrial fibrillation [None]
  - Ileus [None]
  - Small intestinal obstruction [None]
